FAERS Safety Report 7774728-X (Version None)
Quarter: 2011Q3

REPORT INFORMATION
  Report Type: 
  Country: None (occurrence: None)
  Receive Date: 20110923
  Receipt Date: 20110920
  Transmission Date: 20111222
  Serious: Yes (Other)
  Sender: FDA-Public Use
  Company Number: CH-ROCHE-803931

PATIENT
  Sex: Female
  Weight: 102 kg

DRUGS (3)
  1. CYMBALTA [Concomitant]
     Indication: ANXIETY
     Route: 048
  2. XENICAL [Suspect]
     Dosage: FREQUENCY: D
     Route: 048
  3. DROSPIRENONE AND ETHINYL ESTRADIOL [Concomitant]
     Indication: CONTRACEPTION
     Route: 048

REACTIONS (1)
  - GALACTORRHOEA [None]
